FAERS Safety Report 7550912-5 (Version None)
Quarter: 2011Q2

REPORT INFORMATION
  Report Type: 
  Country: None (occurrence: None)
  Receive Date: 20110616
  Receipt Date: 20110602
  Transmission Date: 20111010
  Serious: Yes (Other)
  Sender: FDA-Public Use
  Company Number: US-CELGENEUS-163-21660-11060876

PATIENT

DRUGS (5)
  1. VANDETANIB [Suspect]
     Dosage: 300 MILLIGRAM
     Route: 048
  2. VANDETANIB [Suspect]
     Dosage: 100 MILLIGRAM
     Route: 048
  3. ABRAXANE [Suspect]
     Dosage: 260 MILLIGRAM/SQ. METER
     Route: 051
  4. ABRAXANE [Suspect]
     Dosage: 100 MILLIGRAM/SQ. METER
     Route: 051
  5. VANDETANIB [Suspect]
     Dosage: 200 MILLIGRAM
     Route: 048

REACTIONS (11)
  - HYPERTENSION [None]
  - NEUTROPENIA [None]
  - FATIGUE [None]
  - DYSPNOEA [None]
  - LEUKOPENIA [None]
  - MYALGIA [None]
  - DECREASED APPETITE [None]
  - ARTHRALGIA [None]
  - PRURITUS [None]
  - ELECTROCARDIOGRAM QT PROLONGED [None]
  - DERMATITIS ACNEIFORM [None]
